FAERS Safety Report 9233961 (Version 1)
Quarter: 2013Q2

REPORT INFORMATION
  Report Type: Spontaneous
  Country: US (occurrence: US)
  Receive Date: 20130416
  Receipt Date: 20130416
  Transmission Date: 20140414
  Serious: No
  Sender: FDA-Public Use
  Company Number: US-BANPHARM-20120433

PATIENT
  Age: 77 Year
  Sex: Female
  Weight: 61.24 kg

DRUGS (6)
  1. ALEVE LIQUID GELS 220MG [Suspect]
     Indication: ARTHRITIS
     Dosage: 1 DF, PRN,
     Route: 048
     Dates: start: 2012
  2. CITRACAL? CAL +D SLOW RELEASE 1200 [Concomitant]
  3. SIMVASTATIN [Concomitant]
  4. NATURE MADE VITAMIN D [Concomitant]
  5. GENERIC VESICARE [Concomitant]
  6. NATURE MADE FISH OIL [Concomitant]

REACTIONS (1)
  - Drug ineffective [Not Recovered/Not Resolved]
